FAERS Safety Report 9732692 (Version 3)
Quarter: 2014Q1

REPORT INFORMATION
  Report Type: Spontaneous
  Country: US (occurrence: US)
  Receive Date: 20131205
  Receipt Date: 20140120
  Transmission Date: 20141002
  Serious: No
  Sender: FDA-Public Use
  Company Number: US-TEVA-448614USA

PATIENT
  Age: 17 Year
  Sex: Male

DRUGS (1)
  1. CLARAVIS [Suspect]
     Route: 048
     Dates: start: 20131024, end: 20131120

REACTIONS (2)
  - Nausea [Recovered/Resolved]
  - Dysphagia [Unknown]
